FAERS Safety Report 8207845-0 (Version None)
Quarter: 2012Q1

REPORT INFORMATION
  Report Type: 
  Country: None (occurrence: None)
  Receive Date: 20120314
  Receipt Date: 20120306
  Transmission Date: 20120608
  Serious: Yes (Hospitalization, Other)
  Sender: FDA-Public Use
  Company Number: US-US-EMD SERONO, INC.-238889J08USA

PATIENT
  Sex: Female

DRUGS (10)
  1. RITALIN [Concomitant]
     Indication: FATIGUE
     Dates: start: 20080601
  2. VITAMIN D [Concomitant]
     Indication: VITAMIN D DEFICIENCY
  3. CIPRO [Concomitant]
     Indication: CYSTITIS
     Dates: start: 20080101
  4. IBUPROFEN (ADVIL) [Concomitant]
     Indication: PREMEDICATION
  5. ALLEGRA [Concomitant]
     Indication: POSTURAL ORTHOSTATIC TACHYCARDIA SYNDROME
     Dates: start: 20080601
  6. STEROID [Concomitant]
     Indication: MULTIPLE SCLEROSIS RELAPSE
     Route: 042
     Dates: end: 20080605
  7. TOPROL-XL [Concomitant]
     Indication: POSTURAL ORTHOSTATIC TACHYCARDIA SYNDROME
     Dates: start: 20080801
  8. REBIF [Suspect]
     Indication: RELAPSING-REMITTING MULTIPLE SCLEROSIS
     Route: 058
     Dates: start: 20080214
  9. PEPCID [Concomitant]
     Indication: REFLUX GASTRITIS
     Dates: start: 20080601
  10. CALCIUM WITH VITAMIN D [Concomitant]
     Indication: VITAMIN D DEFICIENCY

REACTIONS (3)
  - PARALYSIS [None]
  - MYOPATHY [None]
  - POSTURAL ORTHOSTATIC TACHYCARDIA SYNDROME [None]
